FAERS Safety Report 20725056 (Version 2)
Quarter: 2022Q3

REPORT INFORMATION
  Report Type: Report from Study
  Country: US (occurrence: US)
  Receive Date: 20220419
  Receipt Date: 20220711
  Transmission Date: 20221027
  Serious: Yes (Hospitalization, Other)
  Sender: FDA-Public Use
  Company Number: US-BoehringerIngelheim-2022-BI-165528

PATIENT
  Age: 67 Year
  Sex: Female
  Weight: 67.1 kg

DRUGS (2)
  1. NINTEDANIB [Suspect]
     Active Substance: NINTEDANIB
     Indication: Systemic sclerosis pulmonary
     Route: 048
     Dates: start: 20180505
  2. MYCOPHENOLIC ACID [Suspect]
     Active Substance: MYCOPHENOLIC ACID
     Indication: Systemic scleroderma
     Route: 048
     Dates: start: 20130801

REACTIONS (1)
  - Hemiparesis [Not Recovered/Not Resolved]

NARRATIVE: CASE EVENT DATE: 20220407
